FAERS Safety Report 9417813 (Version 1)
Quarter: 2013Q3

REPORT INFORMATION
  Report Type: Spontaneous
  Country: US (occurrence: US)
  Receive Date: 20130724
  Receipt Date: 20130724
  Transmission Date: 20140515
  Serious: No
  Sender: FDA-Public Use
  Company Number: US-BAUSCH-BL-2013-001330

PATIENT
  Age: 59 Year
  Sex: Male

DRUGS (1)
  1. OPCON-A [Suspect]
     Indication: OCULAR HYPERAEMIA
     Dosage: 1 DROP IN EACH EYE; ONCE DAILY; OPHTHALMIC
     Route: 047
     Dates: start: 201301

REACTIONS (2)
  - Blood pressure increased [Unknown]
  - Eye pain [Unknown]
